FAERS Safety Report 15150683 (Version 2)
Quarter: 2018Q3

REPORT INFORMATION
  Report Type: Spontaneous
  Country: GB (occurrence: GB)
  Receive Date: 20180716
  Receipt Date: 20180803
  Transmission Date: 20181010
  Serious: Yes (Hospitalization)
  Sender: FDA-Public Use
  Company Number: GB-MYLANLABS-2018M1050617

PATIENT
  Age: 44 Year
  Sex: Male

DRUGS (3)
  1. ANAGRELIDE. [Suspect]
     Active Substance: ANAGRELIDE HYDROCHLORIDE
     Indication: ESSENTIAL THROMBOCYTHAEMIA
     Dosage: UNK
     Route: 065
  2. HYDROXYCARBAMIDE [Suspect]
     Active Substance: HYDROXYUREA
     Indication: ESSENTIAL THROMBOCYTHAEMIA
     Dosage: 1 G, QD
     Route: 065
  3. INTERFERON [Suspect]
     Active Substance: INTERFERON
     Indication: ESSENTIAL THROMBOCYTHAEMIA
     Dosage: 3 G, Q3W
     Route: 065

REACTIONS (6)
  - Fatigue [Recovered/Resolved]
  - Depressed mood [Recovered/Resolved]
  - Multiple-drug resistance [Unknown]
  - Anxiety [Recovered/Resolved]
  - Infection [Recovered/Resolved]
  - Platelet count abnormal [Recovered/Resolved]
